FAERS Safety Report 5223327-2 (Version None)
Quarter: 2007Q1

REPORT INFORMATION
  Report Type: 
  Country: None (occurrence: None)
  Receive Date: 20061201
  Receipt Date: 20060718
  Transmission Date: 20070707
  Serious: No
  Sender: FDA-Public Use
  Company Number: 2006PV017883

PATIENT
  Age: 50 Year
  Sex: Female
  Weight: 89.8122 kg

DRUGS (7)
  1. BYETTA [Suspect]
     Indication: DIABETES MELLITUS NON-INSULIN-DEPENDENT
     Dosage: 10 MCG;SC;10MCG;BID;SC 5 MCG;BID;SC
     Route: 058
     Dates: start: 20060501, end: 20060601
  2. BYETTA [Suspect]
     Indication: DIABETES MELLITUS NON-INSULIN-DEPENDENT
     Dosage: 10 MCG;SC;10MCG;BID;SC 5 MCG;BID;SC
     Route: 058
     Dates: start: 20060601
  3. BYETTA [Suspect]
     Indication: DIABETES MELLITUS NON-INSULIN-DEPENDENT
     Dosage: 10 MCG;SC;10MCG;BID;SC 5 MCG;BID;SC
     Route: 058
     Dates: start: 20060701
  4. BYETTA [Suspect]
  5. METAGLIP [Concomitant]
  6. LANTUS [Concomitant]
  7. ASPIRIN [Concomitant]

REACTIONS (2)
  - BLOOD GLUCOSE INCREASED [None]
  - INJECTION SITE BRUISING [None]
